FAERS Safety Report 17406944 (Version 1)
Quarter: 2020Q1

REPORT INFORMATION
  Report Type: Spontaneous
  Country: IT (occurrence: IT)
  Receive Date: 20200212
  Receipt Date: 20200212
  Transmission Date: 20200409
  Serious: Yes (Other)
  Sender: FDA-Public Use
  Company Number: IT-TEVA-2020-IT-1184552

PATIENT
  Age: 94 Year
  Sex: Female

DRUGS (8)
  1. ALLOPURINOL. [Concomitant]
     Active Substance: ALLOPURINOL
  2. LASIX [Suspect]
     Active Substance: FUROSEMIDE
     Indication: HYPERTENSION
     Dosage: 50 MG 1 DAYS
     Route: 048
  3. METFORMIN [Concomitant]
     Active Substance: METFORMIN HYDROCHLORIDE
     Dosage: 1000 MG
  4. SIMVASTATIN. [Suspect]
     Active Substance: SIMVASTATIN
     Indication: DYSLIPIDAEMIA
     Dosage: 20 MG 1 DAYS
     Route: 048
     Dates: start: 20190101, end: 20191111
  5. LIXIANA [Suspect]
     Active Substance: EDOXABAN TOSYLATE
     Indication: EMBOLIC STROKE
     Dosage: 30 MG 1 DAYS
     Route: 048
     Dates: start: 20190101, end: 20191111
  6. CARDICOR [Concomitant]
     Active Substance: BISOPROLOL
     Dosage: 5 MG
  7. AMIODARONE [Concomitant]
     Active Substance: AMIODARONE
     Dosage: 200 MG
  8. DIBASE [Concomitant]
     Active Substance: CHOLECALCIFEROL

REACTIONS (4)
  - Vomiting [Recovering/Resolving]
  - Gastroenteritis [Recovering/Resolving]
  - Anaemia [Recovering/Resolving]
  - Nausea [Recovering/Resolving]

NARRATIVE: CASE EVENT DATE: 20191111
